FAERS Safety Report 14149224 (Version 1)
Quarter: 2017Q4

REPORT INFORMATION
  Report Type: Report from Study
  Country: JP (occurrence: JP)
  Receive Date: 20171101
  Receipt Date: 20171101
  Transmission Date: 20180321
  Serious: Yes (Other)
  Sender: FDA-Public Use
  Company Number: JP-TEVA-820229ROM

PATIENT
  Age: 51 Year
  Sex: Male

DRUGS (2)
  1. IDARUBICIN [Suspect]
     Active Substance: IDARUBICIN
     Indication: CHLOROMA
     Route: 065
  2. CYTARABINE. [Suspect]
     Active Substance: CYTARABINE
     Indication: CHLOROMA
     Route: 065

REACTIONS (3)
  - Bacteraemia [Recovered/Resolved]
  - Capnocytophaga infection [Recovered/Resolved]
  - Neutropenia [Recovered/Resolved]
